FAERS Safety Report 4706601-5 (Version None)
Quarter: 2005Q3

REPORT INFORMATION
  Report Type: 
  Country: None (occurrence: None)
  Receive Date: 20050705
  Receipt Date: 20050623
  Transmission Date: 20060218
  Serious: Yes (Hospitalization)
  Sender: FDA-Public Use
  Company Number: CH-SANOFI-SYNTHELABO-A01200504420

PATIENT
  Age: 48 Year
  Sex: Male
  Weight: 105 kg

DRUGS (5)
  1. OXALIPLATIN [Suspect]
     Indication: COLON CANCER
     Dosage: CYCLIC
     Route: 042
     Dates: start: 20050414
  2. FLUOROURACIL [Concomitant]
     Indication: DRUG USE FOR UNKNOWN INDICATION
     Dosage: CYCLIC
     Route: 041
     Dates: start: 20050414
  3. FLUOROURACIL [Concomitant]
     Dosage: CYCLIC
     Route: 040
     Dates: start: 20050414
  4. LEUCOVORIN [Concomitant]
     Indication: COLON CANCER
     Dosage: CYCLIC
     Route: 040
     Dates: start: 20050414
  5. AVASTIN [Concomitant]
     Indication: COLON CANCER
     Dosage: CYCLIC
     Route: 041
     Dates: start: 20050414

REACTIONS (12)
  - ANGIONEUROTIC OEDEMA [None]
  - BONE PAIN [None]
  - HAEMOLYTIC ANAEMIA [None]
  - HEADACHE [None]
  - MALIGNANT NEOPLASM PROGRESSION [None]
  - METASTASES TO LIVER [None]
  - METASTASES TO LUNG [None]
  - NAUSEA [None]
  - PANCYTOPENIA [None]
  - PRURITUS GENERALISED [None]
  - SHOCK [None]
  - VOMITING [None]
